FAERS Safety Report 5509750-7 (Version None)
Quarter: 2007Q4

REPORT INFORMATION
  Report Type: 
  Country: None (occurrence: None)
  Receive Date: 20071106
  Receipt Date: 20071030
  Transmission Date: 20080405
  Serious: Yes (Life-Threatening)
  Sender: FDA-Public Use
  Company Number: DE-1163355

PATIENT
  Age: 58 Year
  Sex: Female

DRUGS (5)
  1. AZOPT [Suspect]
     Indication: GLAUCOMA
     Dosage: 1 GTT BID
     Route: 047
     Dates: start: 20070619, end: 20070621
  2. THYRONAJOD (JODTHYROX) [Concomitant]
  3. D-FLUORETTEN (D-FLUORETTEN) [Concomitant]
  4. AARANE                   (ALLERGOSPASMIN) [Concomitant]
  5. AERIUS               (DESLORATADINE) [Concomitant]

REACTIONS (8)
  - ALOPECIA [None]
  - BRONCHOSPASM [None]
  - DYSPNOEA [None]
  - EYE PAIN [None]
  - HEADACHE [None]
  - LARYNGOSPASM [None]
  - OROPHARYNGEAL SPASM [None]
  - VOCAL CORD DISORDER [None]
